FAERS Safety Report 10143545 (Version 2)
Quarter: 2014Q2

REPORT INFORMATION
  Report Type: Spontaneous
  Country: JP (occurrence: JP)
  Receive Date: 20140430
  Receipt Date: 20140430
  Transmission Date: 20141212
  Serious: Yes (Hospitalization)
  Sender: FDA-Public Use
  Company Number: PHJP2014JP000724

PATIENT
  Age: 53 Year
  Sex: Male

DRUGS (2)
  1. TEGRETOL TAB 200MG [Suspect]
     Indication: EPILEPSY
     Dosage: 600 MG, DAILY
     Route: 048
  2. UBRETID [Concomitant]
     Indication: URINARY RETENTION
     Dosage: UNK UKN, UNK
     Route: 048

REACTIONS (2)
  - Multiple injuries [Unknown]
  - Urinary retention [Unknown]
